FAERS Safety Report 12781559 (Version 1)
Quarter: 2016Q3

REPORT INFORMATION
  Report Type: Spontaneous
  Country: US (occurrence: US)
  Receive Date: 20160926
  Receipt Date: 20160926
  Transmission Date: 20161109
  Serious: No
  Sender: FDA-Public Use
  Company Number: US-ALLERGAN-1649054

PATIENT
  Sex: Female

DRUGS (2)
  1. SUCRALFATE UNK [Suspect]
     Active Substance: SUCRALFATE
     Indication: ULCER
     Dosage: UNK, QID
     Route: 048
     Dates: start: 201508
  2. SUCRALFATE UNK [Suspect]
     Active Substance: SUCRALFATE
     Indication: EROSIVE OESOPHAGITIS
     Dosage: UNK, BID
     Route: 048

REACTIONS (2)
  - Intentional product use issue [Not Recovered/Not Resolved]
  - Alopecia [Not Recovered/Not Resolved]
